FAERS Safety Report 4278955-8 (Version None)
Quarter: 2004Q1

REPORT INFORMATION
  Report Type: 
  Country: None (occurrence: None)
  Receive Date: 20040126
  Receipt Date: 20031210
  Transmission Date: 20041129
  Serious: Yes (Hospitalization)
  Sender: FDA-Public Use
  Company Number: JP-ROCHE-353805

PATIENT
  Age: 66 Year
  Sex: Male

DRUGS (11)
  1. TAMIFLU [Suspect]
     Route: 048
     Dates: start: 20030107, end: 20030112
  2. STOMIN A [Concomitant]
     Indication: TINNITUS
     Route: 048
     Dates: start: 20021021
  3. LOCHOL [Concomitant]
     Indication: HYPERCHOLESTEROLAEMIA
     Route: 048
     Dates: start: 20020703
  4. PL [Concomitant]
     Indication: RESPIRATORY TRACT INFECTION
     Route: 048
     Dates: start: 20030107, end: 20030115
  5. PYRINAZIN [Concomitant]
     Indication: RESPIRATORY TRACT INFECTION
     Route: 048
     Dates: start: 20030107, end: 20030115
  6. JOSAMYCIN [Concomitant]
     Indication: RESPIRATORY TRACT INFECTION
     Route: 048
     Dates: start: 20030107, end: 20030111
  7. SOLITA-T3 INJECTION [Concomitant]
     Indication: RESPIRATORY TRACT INFECTION
     Route: 042
     Dates: start: 20030111, end: 20030111
  8. DALACIN S [Concomitant]
     Indication: RESPIRATORY TRACT INFECTION
     Route: 042
     Dates: start: 20030111, end: 20030111
  9. UNASYN [Concomitant]
     Indication: RESPIRATORY TRACT INFECTION
     Route: 048
     Dates: start: 20030111, end: 20030115
  10. ASVERIN [Concomitant]
     Indication: RESPIRATORY TRACT INFECTION
     Route: 048
     Dates: start: 20030111, end: 20030115
  11. BIOFERMIN R [Concomitant]
     Indication: RESPIRATORY TRACT INFECTION
     Route: 048
     Dates: start: 20030111, end: 20030115

REACTIONS (2)
  - ANAEMIA [None]
  - HEPATIC FUNCTION ABNORMAL [None]
